FAERS Safety Report 18344001 (Version 2)
Quarter: 2021Q1

REPORT INFORMATION
  Report Type: Report from Study
  Country: DZ (occurrence: DZ)
  Receive Date: 20201005
  Receipt Date: 20210223
  Transmission Date: 20210419
  Serious: Yes (Death, Other)
  Sender: FDA-Public Use
  Company Number: DZ-JNJFOC-20201001764

PATIENT
  Age: 69 Year
  Sex: Male

DRUGS (5)
  1. VENTAVIS [Suspect]
     Active Substance: ILOPROST
     Route: 055
  2. AZITHROMYCINE [Concomitant]
     Active Substance: AZITHROMYCIN
  3. VENTOLINE [SALBUTAMOL] [Concomitant]
     Active Substance: ALBUTEROL SULFATE
  4. BOSENTAN. [Concomitant]
     Active Substance: BOSENTAN
  5. VENTAVIS [Suspect]
     Active Substance: ILOPROST
     Indication: PULMONARY ARTERIAL HYPERTENSION
     Route: 055
     Dates: start: 20190221, end: 20200913

REACTIONS (4)
  - Off label use [Unknown]
  - Bronchiectasis [Unknown]
  - Pulmonary arterial hypertension [Fatal]
  - Inappropriate schedule of product administration [Unknown]

NARRATIVE: CASE EVENT DATE: 20200920
